FAERS Safety Report 6410234-2 (Version None)
Quarter: 2009Q4

REPORT INFORMATION
  Report Type: 
  Country: None (occurrence: None)
  Receive Date: 20091020
  Receipt Date: 20091020
  Transmission Date: 20100525
  Serious: Yes (Disabling, Other)
  Sender: FDA-Public Use
  Company Number: None

PATIENT
  Age: 34 Year
  Sex: Female
  Weight: 57.1532 kg

DRUGS (2)
  1. CIPROFLOXACIN 500MG COBALT LABORATORIES [Suspect]
     Indication: CYSTITIS
     Dosage: 500MG 2X'S DAY ~ 10 DAYS PO
     Route: 048
     Dates: start: 20091013, end: 20091014
  2. CIPROFLOXACIN 500MG COBALT LABORATORIES [Suspect]
     Indication: KIDNEY INFECTION
     Dosage: 500MG 2X'S DAY ~ 10 DAYS PO
     Route: 048
     Dates: start: 20091013, end: 20091014

REACTIONS (10)
  - ABASIA [None]
  - ABDOMINAL PAIN UPPER [None]
  - ARTHRALGIA [None]
  - DYSSTASIA [None]
  - FLUSHING [None]
  - HEADACHE [None]
  - HYPOAESTHESIA [None]
  - PAIN IN EXTREMITY [None]
  - PARAESTHESIA [None]
  - TRISMUS [None]
